FAERS Safety Report 9177466 (Version 1)
Quarter: 2013Q1

REPORT INFORMATION
  Report Type: Spontaneous
  Country: US (occurrence: US)
  Receive Date: 20130321
  Receipt Date: 20130321
  Transmission Date: 20140127
  Serious: Yes (Disabling)
  Sender: FDA-Public Use
  Company Number: US-SHIRE-ALL1-2013-00557

PATIENT
  Sex: Female
  Weight: 102.4 kg

DRUGS (3)
  1. INTUNIV [Suspect]
     Indication: AUTISM
     Dosage: 2 MG, UNKNOWN
     Route: 065
     Dates: start: 201211
  2. INTUNIV [Suspect]
     Indication: ATTENTION DEFICIT/HYPERACTIVITY DISORDER
  3. MELATONIN [Concomitant]
     Indication: SLEEP DISORDER
     Dosage: UNK, UNKNOWN
     Route: 065

REACTIONS (2)
  - Poor quality sleep [Not Recovered/Not Resolved]
  - Psychomotor hyperactivity [Recovered/Resolved]
